FAERS Safety Report 20469192 (Version 1)
Quarter: 2022Q1

REPORT INFORMATION
  Report Type: Report from Study
  Country: US (occurrence: US)
  Receive Date: 20220214
  Receipt Date: 20220214
  Transmission Date: 20220423
  Serious: No
  Sender: FDA-Public Use
  Company Number: US-PHARMACOVIGILANCE-US-KAD-21-00140

PATIENT
  Sex: Male
  Weight: 77.382 kg

DRUGS (1)
  1. REZUROCK [Suspect]
     Active Substance: BELUMOSUDIL
     Indication: Graft versus host disease
     Dosage: 200 MILLIGRAMS, ONCE DAILY, ORALLY, WITH FOOD IN THE MORNING
     Route: 048
     Dates: start: 20211105

REACTIONS (4)
  - Dizziness [Recovering/Resolving]
  - Somnolence [Recovering/Resolving]
  - Myalgia [Recovering/Resolving]
  - Back pain [Recovering/Resolving]
